FAERS Safety Report 8501558-3 (Version None)
Quarter: 2012Q3

REPORT INFORMATION
  Report Type: 
  Country: None (occurrence: None)
  Receive Date: 20120710
  Receipt Date: 20120625
  Transmission Date: 20120928
  Serious: Yes (Other)
  Sender: FDA-Public Use
  Company Number: CHPA2012US014129

PATIENT
  Sex: Male

DRUGS (7)
  1. DRUG THERAPY NOS [Concomitant]
  2. FIORICET [Concomitant]
     Dosage: UNK
     Route: 048
  3. FIORINAL [Concomitant]
     Route: 048
  4. EXCEDRIN (MIGRAINE) [Suspect]
     Indication: MIGRAINE
     Dosage: 1-2 DF, QD
     Route: 048
     Dates: start: 20080101, end: 20110901
  5. ZOMIG [Concomitant]
     Dosage: 2.5 MG, UNK
     Route: 048
  6. NORTRIPTYLINE HCL [Concomitant]
     Dosage: 10 MG, BID
     Route: 048
  7. GABAPENTIN [Concomitant]
     Dosage: 300 MG, BID
     Route: 048

REACTIONS (2)
  - UNDERDOSE [None]
  - HEPATOMEGALY [None]
